FAERS Safety Report 4864548-8 (Version None)
Quarter: 2005Q4

REPORT INFORMATION
  Report Type: 
  Country: None (occurrence: None)
  Receive Date: 20051222
  Receipt Date: 20051118
  Transmission Date: 20060501
  Serious: Yes (Death)
  Sender: FDA-Public Use
  Company Number: US-BRISTOL-MYERS SQUIBB COMPANY-13188511

PATIENT
  Age: 8 Year
  Sex: Female

DRUGS (6)
  1. CETUXIMAB [Suspect]
     Indication: NEOPLASM
     Dosage: THERAPY INITIATED 08-NOV-2005
     Route: 042
     Dates: start: 20051118, end: 20051118
  2. IRINOTECAN HCL [Suspect]
     Indication: NEOPLASM
     Dosage: THERAPY INITIATED 08-NOV-2005.
     Route: 042
     Dates: start: 20051118, end: 20051118
  3. DEXAMETHASONE [Concomitant]
     Dates: start: 20050712
  4. LOPERAMIDE [Concomitant]
     Dates: start: 20051112
  5. ONDANSETRON [Concomitant]
     Dates: start: 20051108, end: 20051118
  6. TYLENOL W/ CODEINE [Concomitant]

REACTIONS (6)
  - GLIOMA [None]
  - INFECTION [None]
  - NEUTROPENIA [None]
  - PNEUMONIA [None]
  - RESPIRATORY FAILURE [None]
  - SEPSIS [None]
